FAERS Safety Report 4347215-9 (Version None)
Quarter: 2004Q1

REPORT INFORMATION
  Report Type: 
  Country: None (occurrence: None)
  Receive Date: 20040325
  Receipt Date: 20031229
  Transmission Date: 20041129
  Serious: No
  Sender: FDA-Public Use
  Company Number: USA031255510

PATIENT
  Age: 60 Year
  Sex: Female

DRUGS (11)
  1. FORTEO [Suspect]
     Indication: OSTEOPOROSIS
     Dosage: 20 UG/DAY
     Dates: start: 20031214, end: 20031225
  2. ATENOLOL [Concomitant]
  3. PENTA-TRIMATERENE HCTZ [Concomitant]
  4. LEVOXYL [Concomitant]
  5. CALCIUM [Concomitant]
  6. VITAMIN D [Concomitant]
  7. FLAXSEED [Concomitant]
  8. VITAMIN E [Concomitant]
  9. FISH OIL [Concomitant]
  10. VITAMIN C [Concomitant]
  11. VIOXX [Concomitant]

REACTIONS (3)
  - INJECTION SITE ERYTHEMA [None]
  - INJECTION SITE PRURITUS [None]
  - INJECTION SITE URTICARIA [None]
